FAERS Safety Report 6730150 (Version 23)
Quarter: 2015Q1

REPORT INFORMATION
  Report Type: Spontaneous
  Country: US (occurrence: US)
  Receive Date: 20080819
  Receipt Date: 20150223
  Transmission Date: 20150721
  Serious: Yes (Other)
  Sender: FDA-Public Use
  Company Number: PHEH2008US07076

PATIENT
  Age: 67 Year
  Sex: Female

DRUGS (15)
  1. CETIRIZINE [Concomitant]
     Active Substance: CETIRIZINE HYDROCHLORIDE
     Dosage: 10 MG, QD
     Route: 048
  2. HYDROCODONE W/ACETAMINOPHEN [Concomitant]
     Active Substance: ACETAMINOPHEN\HYDROCODONE BITARTRATE
     Dosage: UNK UKN, 5 MG/500 / Q4-6HRS PRN
     Route: 048
  3. FOLIC ACID. [Concomitant]
     Active Substance: FOLIC ACID
     Dosage: 1 MG, UNK
  4. ZOLOFT [Concomitant]
     Active Substance: SERTRALINE HYDROCHLORIDE
     Dosage: 100 MG, QD
  5. IBUPROFEN. [Concomitant]
     Active Substance: IBUPROFEN
     Dosage: 800 MG, TID, PRN
     Route: 048
  6. ZOMETA [Suspect]
     Active Substance: ZOLEDRONIC ACID
     Indication: BREAST CANCER METASTATIC
     Dosage: 4 MG
     Route: 042
     Dates: start: 2004, end: 20061030
  7. VITAMIN B12 [Concomitant]
     Active Substance: CYANOCOBALAMIN
     Dosage: 1000 UG, QMO
     Route: 065
  8. ALLEGRA [Concomitant]
     Active Substance: FEXOFENADINE HYDROCHLORIDE
     Dosage: UNK UKN, UNK
  9. AMOXICILLIN. [Concomitant]
     Active Substance: AMOXICILLIN
     Dosage: 875 MG, BID
  10. TAMOXIFEN [Concomitant]
     Active Substance: TAMOXIFEN
     Dosage: UNK UKN, UNK
  11. CICLOPIROX. [Concomitant]
     Active Substance: CICLOPIROX
     Dosage: UNK UKN, DAILY
  12. TRAZODONE [Concomitant]
     Active Substance: TRAZODONE HYDROCHLORIDE
     Dosage: 50 MG, QHS
     Route: 048
  13. FLUTICASONE [Concomitant]
     Active Substance: FLUTICASONE\FLUTICASONE PROPIONATE
     Dosage: UNK UKN, UNK
     Route: 045
  14. QUETIAPINE [Concomitant]
     Active Substance: QUETIAPINE
     Dosage: 25 MG, QHS
     Route: 048
  15. FEMARA [Concomitant]
     Active Substance: LETROZOLE
     Dosage: 2.5 MG, QD
     Route: 048

REACTIONS (93)
  - Rib fracture [Unknown]
  - Spondylolisthesis [Unknown]
  - Vertebral wedging [Unknown]
  - Depression [Unknown]
  - Onychomycosis [Unknown]
  - Compression fracture [Unknown]
  - Vitamin B12 deficiency [Unknown]
  - Palmar-plantar erythrodysaesthesia syndrome [Unknown]
  - Haemangioma [Unknown]
  - Intervertebral disc protrusion [Unknown]
  - Metastatic neoplasm [Unknown]
  - Bursitis [Unknown]
  - Aortic calcification [Unknown]
  - Cough [Unknown]
  - Bone pain [Unknown]
  - Urinary incontinence [Unknown]
  - Arthralgia [Unknown]
  - Osteolysis [Unknown]
  - Osteoarthritis [Unknown]
  - Crush injury [Unknown]
  - Pulmonary mass [Unknown]
  - Rheumatoid arthritis [Unknown]
  - Hypoaesthesia [Unknown]
  - Vascular calcification [Unknown]
  - Multiple sclerosis [Not Recovered/Not Resolved]
  - Amnesia [Unknown]
  - Skin fissures [Unknown]
  - Ataxia [Unknown]
  - Vision blurred [Unknown]
  - Bone neoplasm [Unknown]
  - Lip injury [Unknown]
  - Compulsive hoarding [Unknown]
  - Cognitive disorder [Unknown]
  - Decreased interest [Unknown]
  - Pulmonary granuloma [Unknown]
  - Nasal septum deviation [Unknown]
  - Fibromyalgia [Unknown]
  - Scar [Unknown]
  - Periodontitis [Unknown]
  - Back pain [Unknown]
  - Polyneuropathy [Unknown]
  - Gait disturbance [Unknown]
  - Kyphoscoliosis [Unknown]
  - Diarrhoea [Unknown]
  - Intervertebral disc degeneration [Unknown]
  - Bronchitis [Unknown]
  - Musculoskeletal discomfort [Unknown]
  - Neutropenia [Unknown]
  - Aortic disorder [Unknown]
  - Mucous membrane disorder [Unknown]
  - Emotional distress [Unknown]
  - Herpes zoster [Unknown]
  - Functional gastrointestinal disorder [Unknown]
  - Dermatophytosis [Unknown]
  - Myelomalacia [Unknown]
  - Lumbar spinal stenosis [Unknown]
  - Rhinorrhoea [Unknown]
  - Adjustment disorder [Unknown]
  - Fatigue [Unknown]
  - Spinal osteoarthritis [Unknown]
  - Musculoskeletal pain [Unknown]
  - Pain [Unknown]
  - Oroantral fistula [Unknown]
  - Tooth abscess [Unknown]
  - Hepatic lesion [Unknown]
  - Sacroiliitis [Unknown]
  - Headache [Unknown]
  - Fall [Unknown]
  - Pulmonary fibrosis [Unknown]
  - Hepatic cyst [Unknown]
  - Asthenia [Unknown]
  - Osteosclerosis [Unknown]
  - Dental caries [Unknown]
  - Ichthyosis [Unknown]
  - Insomnia [Unknown]
  - Osteoporosis [Unknown]
  - Arteriosclerosis coronary artery [Unknown]
  - Dysphoria [Unknown]
  - Malaise [Unknown]
  - Muscular weakness [Not Recovered/Not Resolved]
  - Osteopenia [Unknown]
  - Osteonecrosis of jaw [Unknown]
  - Anxiety [Unknown]
  - Physical disability [Unknown]
  - Tooth disorder [Unknown]
  - Gingivitis [Unknown]
  - Atelectasis [Unknown]
  - Rash vesicular [Unknown]
  - Atrophy [Unknown]
  - Chest pain [Unknown]
  - Bone swelling [Unknown]
  - Clavicle fracture [Recovering/Resolving]
  - Alopecia [Unknown]

NARRATIVE: CASE EVENT DATE: 201012
